FAERS Safety Report 24142364 (Version 1)
Quarter: 2024Q3

REPORT INFORMATION
  Report Type: Spontaneous
  Country: US (occurrence: US)
  Receive Date: 20240726
  Receipt Date: 20240726
  Transmission Date: 20241016
  Serious: No
  Sender: BIOVITRUM
  Company Number: US-BIOVITRUM-2024-US-006884

PATIENT
  Age: 40 Year
  Sex: Male

DRUGS (1)
  1. ANAKINRA [Suspect]
     Active Substance: ANAKINRA
     Indication: Inflammation
     Dosage: THREE TIMES A WEEK

REACTIONS (2)
  - Vascular access site cellulitis [Unknown]
  - Off label use [Recovered/Resolved]
